FAERS Safety Report 12305988 (Version 1)
Quarter: 2016Q2

REPORT INFORMATION
  Report Type: Spontaneous
  Country: BR (occurrence: BR)
  Receive Date: 20160426
  Receipt Date: 20160426
  Transmission Date: 20160815
  Serious: Yes (Other)
  Sender: FDA-Public Use
  Company Number: BR-JNJFOC-20160205096

PATIENT
  Sex: Male
  Weight: 96 kg

DRUGS (2)
  1. STELARA [Suspect]
     Active Substance: USTEKINUMAB
     Indication: PSORIASIS
     Route: 058
     Dates: start: 20150625
  2. METRAZOLE [Concomitant]
     Route: 065

REACTIONS (4)
  - Hepatitis C [Unknown]
  - Therapeutic response decreased [Unknown]
  - Psoriasis [Unknown]
  - Arthralgia [Unknown]
